FAERS Safety Report 5523136-0 (Version None)
Quarter: 2007Q4

REPORT INFORMATION
  Report Type: 
  Country: None (occurrence: None)
  Receive Date: 20071121
  Receipt Date: 20071109
  Transmission Date: 20080405
  Serious: Yes (Other)
  Sender: FDA-Public Use
  Company Number: HQWYE358822JUL04

PATIENT
  Sex: Female

DRUGS (3)
  1. PREMARIN [Suspect]
  2. FEMHRT [Suspect]
  3. PREMPRO [Suspect]

REACTIONS (4)
  - HYPERTENSION [None]
  - IDIOPATHIC THROMBOCYTOPENIC PURPURA [None]
  - MUSCULOSKELETAL DISORDER [None]
  - SUPRAVENTRICULAR TACHYCARDIA [None]
